FAERS Safety Report 8991147 (Version 2)
Quarter: 2013Q1

REPORT INFORMATION
  Report Type: Spontaneous
  Country: US (occurrence: None)
  Receive Date: 20121219
  Receipt Date: 20121220
  Transmission Date: 20140127
  Serious: Yes (Hospitalization)
  Sender: FDA-Public Use
  Company Number: 2012-1498

PATIENT
  Age: 68 Year
  Sex: Female

DRUGS (7)
  1. KYPROLIS [Suspect]
     Indication: PLASMA CELL MYELOMA
     Dosage: (2 IN 1 WK), INTRAVENOUS
     Route: 042
     Dates: start: 20120829
  2. AMIODARONE (AMIODARONE) (AMIODARONE) [Concomitant]
  3. CARDIZEM (DILTIAZEM) (DILTIAZEM) [Concomitant]
  4. COUMADIN (WARFARIN SODIUM) (WARFARIN SODIUM) [Concomitant]
  5. LISINOPRIL (LISINOPRIL) (LISINOPRIL) [Concomitant]
  6. XANAX (ALPRAZOLAM) (ALPRAZOLAM) [Concomitant]
  7. DEXAMETHASONE (DEXAMETHASONE) (DEXAMETHASONE) [Concomitant]

REACTIONS (8)
  - Pyrexia [None]
  - Arthralgia [None]
  - Pain in extremity [None]
  - Inflammation [None]
  - Pain in extremity [None]
  - Arthritis [None]
  - Psoriatic arthropathy [None]
  - Atrial fibrillation [None]
